FAERS Safety Report 5202515-5 (Version None)
Quarter: 2006Q4

REPORT INFORMATION
  Report Type: 
  Country: None (occurrence: None)
  Receive Date: 20061016
  Receipt Date: 20060822
  Transmission Date: 20070319
  Serious: No
  Sender: FDA-Public Use
  Company Number: 2006SP003093

PATIENT
  Age: 75 Year
  Sex: Female

DRUGS (2)
  1. LUNESTA [Suspect]
     Indication: INSOMNIA
     Dosage: 2 MG;HS;ORAL
     Route: 048
     Dates: start: 20060814, end: 20060821
  2. PREVACID [Concomitant]

REACTIONS (4)
  - DYSGEUSIA [None]
  - HANGOVER [None]
  - INITIAL INSOMNIA [None]
  - NAUSEA [None]
